FAERS Safety Report 17567018 (Version 4)
Quarter: 2025Q4

REPORT INFORMATION
  Report Type: Spontaneous
  Country: EU (occurrence: EU)
  Receive Date: 20200320
  Receipt Date: 20251010
  Transmission Date: 20260118
  Serious: Yes (Hospitalization, Other)
  Sender: PFIZER
  Company Number: EU-ROCHE-2380020

PATIENT
  Age: 54 Year
  Sex: Male
  Weight: 87.5 kg

DRUGS (38)
  1. OCTREOTIDE ACETATE [Suspect]
     Active Substance: OCTREOTIDE ACETATE
     Indication: Gastrointestinal haemorrhage
     Dosage: 1 DF, 1X/DAY
     Route: 042
     Dates: start: 20190605, end: 20190607
  2. OCTREOTIDE ACETATE [Suspect]
     Active Substance: OCTREOTIDE ACETATE
     Dosage: 600 UG, DAILY
     Route: 042
     Dates: start: 20190605, end: 20190607
  3. PIPERACILLIN SODIUM\TAZOBACTAM SODIUM [Suspect]
     Active Substance: PIPERACILLIN SODIUM\TAZOBACTAM SODIUM
     Indication: Sepsis
     Dosage: 12 G, 1X/DAY
     Route: 042
     Dates: start: 20190406, end: 20190607
  4. PIPERACILLIN SODIUM\TAZOBACTAM SODIUM [Suspect]
     Active Substance: PIPERACILLIN SODIUM\TAZOBACTAM SODIUM
     Dosage: 12 G, 1X/DAY
     Route: 042
     Dates: start: 20190614, end: 20190624
  5. REMIFENTANIL [Suspect]
     Active Substance: REMIFENTANIL
     Indication: Anaesthesia
     Dosage: 796 UG, 1X/DAY
     Dates: start: 20190515, end: 20190515
  6. PANTOPRAZOLE [Suspect]
     Active Substance: PANTOPRAZOLE
     Indication: Prophylaxis against gastrointestinal ulcer
     Dosage: 20 MG
     Route: 048
     Dates: start: 20190505
  7. LOVENOX [Suspect]
     Active Substance: ENOXAPARIN SODIUM
     Indication: Thrombosis prophylaxis
     Dosage: 4000 IU, 1X/DAY
  8. MAGNESIUM [Suspect]
     Active Substance: MAGNESIUM
     Indication: Magnesium deficiency
     Dosage: 1 DF, 1X/DAY
  9. AMIKACIN [Suspect]
     Active Substance: AMIKACIN
     Indication: Sepsis
     Dosage: 1500 MG, 1X/DAY
     Dates: start: 20190604, end: 20190604
  10. COLCHICINE [Suspect]
     Active Substance: COLCHICINE
     Indication: Gout
     Dosage: 2 MG, 1X/DAY
     Route: 048
     Dates: start: 20190615, end: 20190617
  11. MORPHINE SULFATE [Suspect]
     Active Substance: MORPHINE SULFATE
     Indication: Pain
     Dosage: 15 MG, 1X/DAY
     Route: 048
     Dates: start: 20190629, end: 20190705
  12. PROPOFOL [Suspect]
     Active Substance: PROPOFOL
     Indication: Pain
     Dosage: 1088 MG, 1X/DAY
     Dates: start: 20190515, end: 20190515
  13. CETIRIZINE [Suspect]
     Active Substance: CETIRIZINE HYDROCHLORIDE
     Indication: Allergy prophylaxis
     Dosage: 1 DF, 1X/DAY
     Dates: start: 20190606
  14. VANCOMYCIN [Suspect]
     Active Substance: VANCOMYCIN
     Indication: Pain
     Dosage: 3080 MG, 1X/DAY
     Dates: start: 20190605, end: 20190628
  15. TINZAPARIN SODIUM [Suspect]
     Active Substance: TINZAPARIN SODIUM
     Indication: Thrombosis
     Dosage: 17000 IU, 1X/DAY
     Route: 058
     Dates: start: 20190505, end: 20190520
  16. TRAMADOL [Suspect]
     Active Substance: TRAMADOL
     Indication: Pain
     Dosage: UNK
     Route: 048
     Dates: start: 20190520, end: 20190602
  17. PHYTONADIONE [Suspect]
     Active Substance: PHYTONADIONE
     Indication: Prothrombin time ratio decreased
     Dosage: 20 MG, 1X/DAY
     Route: 042
     Dates: start: 20190604, end: 20190609
  18. DAPTOMYCIN [Suspect]
     Active Substance: DAPTOMYCIN
     Indication: Septic shock
     Dosage: 850 MG, 1X/DAY
     Dates: start: 20190701, end: 20190704
  19. NEFOPAM [Suspect]
     Active Substance: NEFOPAM
     Indication: Pain
     Dosage: 20 MG
     Dates: start: 20190515
  20. TRAMADOL HYDROCHLORIDE [Suspect]
     Active Substance: TRAMADOL HYDROCHLORIDE
     Indication: Pain
     Dosage: 200 MG, 1X/DAY
     Route: 048
     Dates: start: 20190515, end: 20190515
  21. CEFTRIAXONE [Suspect]
     Active Substance: CEFTRIAXONE
     Indication: Sepsis
     Dosage: 1 G, 1X/DAY
     Dates: start: 20190607, end: 20190613
  22. INNOHEP [Suspect]
     Active Substance: TINZAPARIN SODIUM
     Indication: Thrombosis
     Dosage: 17000 IU, 1X/DAY
     Route: 058
     Dates: start: 20190505, end: 20190520
  23. DAPTOMYCIN [Suspect]
     Active Substance: DAPTOMYCIN
     Indication: Septic shock
     Dosage: 850 MG, 1X/DAY
     Route: 042
     Dates: start: 20190701, end: 20190704
  24. AMIKACIN SULFATE [Suspect]
     Active Substance: AMIKACIN SULFATE
     Indication: Sepsis
     Dosage: 1500 MG, 1X/DAY
     Route: 042
     Dates: start: 20190604, end: 20190604
  25. POLARAMINE [Suspect]
     Active Substance: DEXCHLORPHENIRAMINE MALEATE
     Indication: Allergy prophylaxis
     Dosage: 5 MG, 1X/DAY
     Route: 042
     Dates: start: 20190606, end: 20190606
  26. REMIFENTANIL [Suspect]
     Active Substance: REMIFENTANIL
     Indication: Anaesthesia
     Dosage: 796 UG, 1X/DAY
     Route: 042
     Dates: start: 20190515, end: 20190515
  27. MAGNESIUM PIDOLATE [Suspect]
     Active Substance: MAGNESIUM PIDOLATE
     Indication: Magnesium deficiency
     Dosage: 2-0-0
     Route: 048
     Dates: start: 20190618, end: 20190705
  28. PANTOPRAZOLE SODIUM [Suspect]
     Active Substance: PANTOPRAZOLE SODIUM
     Indication: Prophylaxis against gastrointestinal ulcer
     Dosage: 20 MG IN THE MORNING
     Route: 048
     Dates: start: 20190505
  29. PIPERACILLIN AND TAZOBACTAM [Suspect]
     Active Substance: PIPERACILLIN SODIUM\TAZOBACTAM SODIUM
     Indication: Sepsis
     Dosage: 3 DF, 1X/DAY (1-1-1)
     Route: 042
     Dates: start: 20190604, end: 20190607
  30. PIPERACILLIN AND TAZOBACTAM [Suspect]
     Active Substance: PIPERACILLIN SODIUM\TAZOBACTAM SODIUM
     Dosage: 12 G, 1X/DAY
     Route: 042
     Dates: start: 20190614, end: 20190624
  31. PROPOFOL [Suspect]
     Active Substance: PROPOFOL
     Indication: Anaesthesia
     Dosage: 1088 MG, 1X/DAY
     Route: 042
     Dates: start: 20190515, end: 20190515
  32. NEFOPAM [Suspect]
     Active Substance: NEFOPAM
     Indication: Pain
     Dosage: 20 MG, UNK
     Route: 042
     Dates: start: 20190505
  33. METHYLPREDNISOLONE HEMISUCCINATE [Suspect]
     Active Substance: METHYLPREDNISOLONE HEMISUCCINATE
     Indication: Allergy prophylaxis
     Dosage: 60 MG, 1X/DAY
     Route: 042
     Dates: start: 20190606, end: 20190606
  34. CETIRIZINE [Suspect]
     Active Substance: CETIRIZINE HYDROCHLORIDE
     Indication: Allergy prophylaxis
     Dosage: 10 MG, 1X/DAY, 0-0-1
     Route: 048
     Dates: start: 20190606
  35. TRAMADOL HYDROCHLORIDE [Suspect]
     Active Substance: TRAMADOL HYDROCHLORIDE
     Indication: Pain
     Dosage: 200 MG, 1X/DAY
     Route: 042
     Dates: start: 20190515, end: 20190515
  36. VITAMIN K1 [Suspect]
     Active Substance: PHYTONADIONE
     Indication: Prothrombin time ratio decreased
     Dosage: 20 MG, 1X/DAY
     Route: 042
     Dates: start: 20190604, end: 20190609
  37. KARDEGIC [Concomitant]
     Active Substance: ASPIRIN DL-LYSINE
     Indication: Ischaemic cardiomyopathy
     Dosage: 75 MG, 1X/DAY, 0-1-0
     Route: 048
  38. DOLIPRANE [Concomitant]
     Active Substance: ACETAMINOPHEN
     Indication: Pain
     Dosage: UNK
     Route: 048

REACTIONS (1)
  - Drug reaction with eosinophilia and systemic symptoms [Not Recovered/Not Resolved]

NARRATIVE: CASE EVENT DATE: 20190701
